FAERS Safety Report 5477982-2 (Version None)
Quarter: 2007Q4

REPORT INFORMATION
  Report Type: 
  Country: None (occurrence: None)
  Receive Date: 20071005
  Receipt Date: 20070928
  Transmission Date: 20080405
  Serious: Yes (Other)
  Sender: FDA-Public Use
  Company Number: US-JNJFOC-20071000244

PATIENT
  Sex: Male

DRUGS (2)
  1. IMODIUM A-D CREAMY MINT [Suspect]
  2. IMODIUM A-D CREAMY MINT [Suspect]
     Indication: DRUG USE FOR UNKNOWN INDICATION
     Dosage: UNKNOWN

REACTIONS (1)
  - ANGINA PECTORIS [None]
